FAERS Safety Report 9529151 (Version 1)
Quarter: 2013Q3

REPORT INFORMATION
  Report Type: Not Available
  Country: US (occurrence: US)
  Receive Date: 20130916
  Receipt Date: 20130916
  Transmission Date: 20140515
  Serious: No
  Sender: FDA-Public Use
  Company Number: US-LUNDBECK-DKLU1090209

PATIENT
  Sex: Female

DRUGS (6)
  1. ONFI [Suspect]
     Indication: GRAND MAL CONVULSION
     Route: 048
     Dates: start: 20130326
  2. ONFI [Suspect]
     Indication: CONVULSION
     Route: 048
  3. ONFI [Suspect]
     Route: 048
  4. ONFI [Suspect]
     Route: 048
  5. VIMPAT [Concomitant]
     Indication: PRODUCT USED FOR UNKNOWN INDICATION
  6. LAMICTAL [Concomitant]
     Indication: PRODUCT USED FOR UNKNOWN INDICATION

REACTIONS (1)
  - Somnolence [Unknown]
